FAERS Safety Report 8198848-3 (Version None)
Quarter: 2012Q1

REPORT INFORMATION
  Report Type: 
  Country: None (occurrence: None)
  Receive Date: 20120309
  Receipt Date: 20120227
  Transmission Date: 20120608
  Serious: No
  Sender: FDA-Public Use
  Company Number: US-B.I. PHARMACEUTICALS,INC./RIDGEFIELD-2012-BP-01624BP

PATIENT
  Sex: Female

DRUGS (7)
  1. TRICOR [Concomitant]
     Indication: BLOOD CHOLESTEROL INCREASED
  2. COREG [Concomitant]
     Indication: CARDIAC DISORDER
  3. PRADAXA [Suspect]
     Indication: ATRIAL FIBRILLATION
     Dosage: 300 MG
     Route: 048
  4. ALTACE [Concomitant]
     Indication: HYPERTENSION
  5. MULTI-VITAMIN [Concomitant]
     Indication: SUPPLEMENTATION THERAPY
  6. PREMARIN [Concomitant]
     Indication: SUPPLEMENTATION THERAPY
  7. KEPPRA [Concomitant]
     Indication: CONVULSION

REACTIONS (4)
  - QUALITY OF LIFE DECREASED [None]
  - CONSTIPATION [None]
  - DIARRHOEA [None]
  - RECTAL HAEMORRHAGE [None]
